FAERS Safety Report 16528961 (Version 2)
Quarter: 2019Q3

REPORT INFORMATION
  Report Type: Spontaneous
  Country: JP (occurrence: JP)
  Receive Date: 20190703
  Receipt Date: 20190809
  Transmission Date: 20191004
  Serious: No
  Sender: FDA-Public Use
  Company Number: JP-ALLERGAN-1927278US

PATIENT
  Sex: Male
  Weight: 60 kg

DRUGS (10)
  1. REMICADE [Suspect]
     Active Substance: INFLIXIMAB
     Dosage: 5 MG/KG, QD
     Route: 042
     Dates: start: 20070911
  2. URSODEOXYCHOLIC ACID - BP [Suspect]
     Active Substance: URSODIOL
     Indication: PRIMARY BILIARY CHOLANGITIS
     Dosage: 200 MG, TID
     Route: 048
     Dates: start: 20100924
  3. REMICADE [Suspect]
     Active Substance: INFLIXIMAB
     Dosage: 10 MG/KG, QD
     Route: 042
  4. REMICADE [Suspect]
     Active Substance: INFLIXIMAB
     Indication: BEHCET^S SYNDROME
     Dosage: 8 MG/KG, QD
     Route: 042
     Dates: start: 20180725
  5. REMICADE [Suspect]
     Active Substance: INFLIXIMAB
     Dosage: 10 MG/KG, QD
     Route: 042
     Dates: start: 20160713
  6. REMICADE [Suspect]
     Active Substance: INFLIXIMAB
     Dosage: 8 MG/KG, QD
     Route: 065
     Dates: start: 20141224
  7. REMICADE [Suspect]
     Active Substance: INFLIXIMAB
     Dosage: 6 MG/KG, QD
     Route: 042
     Dates: start: 20100611
  8. ACTEMRA [Concomitant]
     Active Substance: TOCILIZUMAB
     Dosage: UNK
     Route: 065
  9. BEZATOL [Concomitant]
     Active Substance: BEZAFIBRATE
     Dosage: UNK
     Route: 065
     Dates: start: 20150218
  10. SIMPONI [Concomitant]
     Active Substance: GOLIMUMAB
     Dosage: UNK
     Route: 065

REACTIONS (1)
  - Psoriasis [Recovering/Resolving]

NARRATIVE: CASE EVENT DATE: 201801
